FAERS Safety Report 6766639-3 (Version None)
Quarter: 2010Q2

REPORT INFORMATION
  Report Type: 
  Country: None (occurrence: None)
  Receive Date: 20100609
  Receipt Date: 20100531
  Transmission Date: 20101027
  Serious: Yes (Hospitalization)
  Sender: FDA-Public Use
  Company Number: 2010AL003235

PATIENT
  Age: 83 Year
  Sex: Male

DRUGS (1)
  1. BICALUTAMIDE TABLETS(ATTLC) (BICALUTAMIDE TABLETS, 50MG (ATTLC) [Suspect]
     Indication: PROSTATE CANCER
     Dosage: 150MG;QD;PO
     Route: 048
     Dates: start: 20100415, end: 20100513

REACTIONS (4)
  - LEUKOCYTOCLASTIC VASCULITIS [None]
  - PURPURA [None]
  - SKIN OEDEMA [None]
  - THROMBOCYTOPENIA [None]
